FAERS Safety Report 14745997 (Version 1)
Quarter: 2018Q2

REPORT INFORMATION
  Report Type: Spontaneous
  Country: SE (occurrence: SE)
  Receive Date: 20180411
  Receipt Date: 20180411
  Transmission Date: 20180711
  Serious: Yes (Hospitalization, Other)
  Sender: FDA-Public Use
  Company Number: SE-ALLERGAN-1819884US

PATIENT
  Age: 74 Year
  Sex: Female

DRUGS (1)
  1. ESCITALOPRAM OXALATE - BP [Suspect]
     Active Substance: ESCITALOPRAM OXALATE
     Indication: DEPRESSION
     Dosage: 10 MG, UNK
     Route: 065

REACTIONS (5)
  - Myocardial infarction [Unknown]
  - Amnesia [Unknown]
  - Memory impairment [Unknown]
  - Personality disorder [Unknown]
  - Cerebrovascular accident [Unknown]
